FAERS Safety Report 7721099-0 (Version None)
Quarter: 2011Q3

REPORT INFORMATION
  Report Type: 
  Country: None (occurrence: None)
  Receive Date: 20110831
  Receipt Date: 20100928
  Transmission Date: 20111222
  Serious: No
  Sender: FDA-Public Use
  Company Number: US-BAYER-201035163NA

PATIENT
  Age: 68 Year
  Sex: Male

DRUGS (6)
  1. AVELOX [Suspect]
     Indication: SINUSITIS
     Dosage: 400 MG, QD
     Route: 048
     Dates: start: 20100923
  2. PROPRANOLOL [Concomitant]
  3. PROTONIX [Concomitant]
  4. ASPIRIN [Concomitant]
  5. AMLODIPINE BESYLATE AND VALSARTAN [Concomitant]
  6. MYLANTA AR [Concomitant]

REACTIONS (1)
  - NAUSEA [None]
